FAERS Safety Report 9277480 (Version 1)
Quarter: 2013Q2

REPORT INFORMATION
  Report Type: Spontaneous
  Country: ES (occurrence: ES)
  Receive Date: 20130508
  Receipt Date: 20130508
  Transmission Date: 20140414
  Serious: Yes (Other)
  Sender: FDA-Public Use
  Company Number: ES-BAYER-2013-056275

PATIENT
  Age: 62 Year
  Sex: Male

DRUGS (12)
  1. LEVITRA [Suspect]
     Indication: ERECTILE DYSFUNCTION
     Dosage: 10 MG, UNK
     Route: 060
     Dates: start: 20130429, end: 20130430
  2. TRIFLUSAL [Concomitant]
     Dosage: 300 MG, UNK
     Dates: start: 20130318
  3. CARDURAN NEO [Concomitant]
     Dosage: 8 MG, UNK
     Dates: start: 20120126
  4. OLMETEC [Concomitant]
     Dosage: 40 MG, UNK
     Dates: start: 20110803
  5. VENTOLIN [Concomitant]
     Dosage: 100 ?G, UNK
     Route: 055
     Dates: start: 20121221
  6. METFORMIN HCL [Concomitant]
     Dosage: 850 MG, UNK
     Dates: start: 20110120
  7. MONTELUKAST [Concomitant]
     Dosage: 10 MG, UNK
     Dates: start: 20110120
  8. LORATADINA [Concomitant]
     Dosage: 10 MG, UNK
     Dates: start: 20110121
  9. FLIXONASE [Concomitant]
     Dosage: 400 ?G, UNK
     Dates: start: 20110121
  10. SIMVASTATIN STADA [Concomitant]
     Dosage: 40 MG, UNK
     Dates: start: 20110519
  11. VENLAFAXINE HYDROCHLORIDE [Concomitant]
     Dosage: 75 MG, UNK
     Dates: start: 20110121
  12. OMEPRAZOL [Concomitant]
     Dosage: 20 MG, UNK
     Dates: start: 20110121

REACTIONS (1)
  - Confusional state [Recovered/Resolved]
